FAERS Safety Report 23089359 (Version 1)
Quarter: 2023Q4

REPORT INFORMATION
  Report Type: Other
  Country: US (occurrence: None)
  Receive Date: 20231020
  Receipt Date: 20231020
  Transmission Date: 20240109
  Serious: Yes (Other)
  Sender: FDA-Public Use
  Company Number: US-ROCHE-3440652

PATIENT
  Age: 76 Year
  Sex: Female
  Weight: 49.1 kg

DRUGS (21)
  1. GAVRETO [Suspect]
     Active Substance: PRALSETINIB
     Indication: Thyroid cancer
     Dosage: THERAPY WILL END ON 16/NOV/2023, QUANTITY: 30, REFILL: 11, TAKE 1 TABLET, BY MOUTH, DATE OF FIRST TR
     Route: 048
     Dates: start: 20170922
  2. GAVRETO [Suspect]
     Active Substance: PRALSETINIB
     Indication: Metastases to the respiratory system
  3. GAVRETO [Suspect]
     Active Substance: PRALSETINIB
     Indication: Metastases to gastrointestinal tract
  4. ASPIRIN [Concomitant]
     Active Substance: ASPIRIN
  5. CALTRATE [Concomitant]
     Active Substance: CALCIUM CARBONATE
  6. COREG [Concomitant]
     Active Substance: CARVEDILOL
  7. CATAPRES [Concomitant]
     Active Substance: CLONIDINE HYDROCHLORIDE
  8. PLAVIX [Concomitant]
     Active Substance: CLOPIDOGREL BISULFATE
  9. VITAMIN B12 [Concomitant]
     Active Substance: CYANOCOBALAMIN
  10. FISH OIL [Concomitant]
     Active Substance: FISH OIL
  11. SINEQUAN [Concomitant]
     Active Substance: DOXEPIN HYDROCHLORIDE
  12. IMODIUM [Concomitant]
     Active Substance: LOPERAMIDE HYDROCHLORIDE
  13. MAGNESIUM [Concomitant]
     Active Substance: MAGNESIUM
  14. PROTONIX [Concomitant]
     Active Substance: PANTOPRAZOLE SODIUM
  15. MIRALAX [Concomitant]
     Active Substance: POLYETHYLENE GLYCOL 3350
  16. PYRIDOXINE [Concomitant]
     Active Substance: PYRIDOXINE
  17. CRESTOR [Concomitant]
     Active Substance: ROSUVASTATIN CALCIUM
  18. SYNTHROID [Concomitant]
     Active Substance: LEVOTHYROXINE SODIUM
  19. RESTORIL [Concomitant]
     Active Substance: TEMAZEPAM
  20. SONATA (UNITED STATES) [Concomitant]
  21. POTASSIUM CHLORIDE [Concomitant]
     Active Substance: POTASSIUM CHLORIDE

REACTIONS (8)
  - Diarrhoea [Unknown]
  - Alanine aminotransferase abnormal [Unknown]
  - Haemoglobin abnormal [Unknown]
  - Leukopenia [Unknown]
  - Aspartate aminotransferase abnormal [Unknown]
  - Fatigue [Unknown]
  - Labile blood pressure [Unknown]
  - Lymphopenia [Unknown]

NARRATIVE: CASE EVENT DATE: 20170922
